FAERS Safety Report 25285432 (Version 1)
Quarter: 2025Q2

REPORT INFORMATION
  Report Type: Spontaneous
  Country: DE (occurrence: DE)
  Receive Date: 20250509
  Receipt Date: 20250509
  Transmission Date: 20250716
  Serious: Yes (Hospitalization, Other)
  Sender: NOVITIUM PHARMA
  Company Number: DE-NOVITIUMPHARMA-2025DENVP01087

PATIENT
  Age: 17 Year

DRUGS (10)
  1. PREDNISONE [Suspect]
     Active Substance: PREDNISONE
     Indication: Anti-melanoma differentiation-associated protein 5 antibody positive
  2. PREDNISONE [Suspect]
     Active Substance: PREDNISONE
     Indication: Anti-melanoma differentiation-associated protein 5 antibody positive
  3. METHYLPREDNISOLONE [Concomitant]
     Active Substance: METHYLPREDNISOLONE
  4. METHYLPREDNISOLONE [Concomitant]
     Active Substance: METHYLPREDNISOLONE
     Indication: Dermatomyositis
  5. MYCOPHENOLATE MOFETIL [Concomitant]
     Active Substance: MYCOPHENOLATE MOFETIL
     Indication: Anti-melanoma differentiation-associated protein 5 antibody positive
  6. MYCOPHENOLATE MOFETIL [Concomitant]
     Active Substance: MYCOPHENOLATE MOFETIL
     Indication: Dermatomyositis
  7. RITUXIMAB [Concomitant]
     Active Substance: RITUXIMAB
     Indication: Anti-melanoma differentiation-associated protein 5 antibody positive
  8. RITUXIMAB [Concomitant]
     Active Substance: RITUXIMAB
     Indication: Dermatomyositis
  9. TOFACITINIB [Concomitant]
     Active Substance: TOFACITINIB
     Indication: Anti-melanoma differentiation-associated protein 5 antibody positive
  10. TOFACITINIB [Concomitant]
     Active Substance: TOFACITINIB
     Indication: Dermatomyositis

REACTIONS (2)
  - Cytomegalovirus infection reactivation [Unknown]
  - Aspergillus infection [Unknown]
